FAERS Safety Report 9468296 (Version 2)
Quarter: 2013Q4

REPORT INFORMATION
  Report Type: Spontaneous
  Country: US (occurrence: US)
  Receive Date: 20130821
  Receipt Date: 20131111
  Transmission Date: 20140711
  Serious: Yes (Life-Threatening, Hospitalization)
  Sender: FDA-Public Use
  Company Number: US-JNJFOC-20130808398

PATIENT
  Age: 81 Year
  Sex: Female

DRUGS (7)
  1. XARELTO [Suspect]
     Indication: CEREBROVASCULAR ACCIDENT PROPHYLAXIS
     Dosage: FOR ABOUT 2 MONTHS
     Route: 048
     Dates: start: 20130228, end: 20130811
  2. XARELTO [Suspect]
     Indication: ATRIAL FIBRILLATION
     Dosage: FOR ABOUT 2 MONTHS
     Route: 048
     Dates: start: 20130228, end: 20130811
  3. FOSAMAX [Concomitant]
     Route: 065
  4. CALCIUM VITAMINE D3 [Concomitant]
     Route: 065
  5. SIMVASTATIN [Concomitant]
     Route: 065
  6. ATENOLOL [Concomitant]
     Route: 065
  7. DIOVAN [Concomitant]
     Route: 065

REACTIONS (1)
  - Deep vein thrombosis [Recovering/Resolving]
